FAERS Safety Report 5410616-1 (Version None)
Quarter: 2007Q3

REPORT INFORMATION
  Report Type: 
  Country: None (occurrence: None)
  Receive Date: 20070810
  Receipt Date: 20070413
  Transmission Date: 20080115
  Serious: No
  Sender: FDA-Public Use
  Company Number: A0647670A

PATIENT
  Sex: Female

DRUGS (4)
  1. PAXIL [Suspect]
     Indication: DEPRESSION
     Dosage: 10MG UNKNOWN
     Route: 048
  2. WELLBUTRIN XL [Suspect]
     Indication: DRUG USE FOR UNKNOWN INDICATION
     Dosage: 150MG PER DAY
     Route: 048
  3. RITALIN [Concomitant]
  4. TRANXENE [Concomitant]

REACTIONS (2)
  - DEPRESSION [None]
  - DRUG INEFFECTIVE [None]
